FAERS Safety Report 8186997-5 (Version None)
Quarter: 2012Q1

REPORT INFORMATION
  Report Type: 
  Country: None (occurrence: None)
  Receive Date: 20120213
  Receipt Date: 20120110
  Transmission Date: 20120608
  Serious: No
  Sender: FDA-Public Use
  Company Number: 1000019604

PATIENT
  Age: 83 Year
  Sex: Male

DRUGS (9)
  1. DIOVAN [Concomitant]
  2. LORAZEPAM [Concomitant]
  3. SAVELLA [Suspect]
     Indication: BACK PAIN
     Dosage: SEE IMAGE
     Route: 048
     Dates: start: 20110310, end: 20110311
  4. SAVELLA [Suspect]
     Indication: BACK PAIN
     Dosage: SEE IMAGE
     Route: 048
     Dates: start: 20110309, end: 20110309
  5. SAVELLA [Suspect]
     Indication: BACK PAIN
     Dosage: SEE IMAGE
     Route: 048
     Dates: start: 20110312, end: 20110315
  6. SAVELLA [Suspect]
     Indication: BACK PAIN
     Dosage: SEE IMAGE
     Route: 048
     Dates: start: 20110316
  7. PREVACID (LANSOPRAZOLE) (LANSOPRAZOLE) [Concomitant]
  8. SIMVASTATIN [Concomitant]
  9. LYRICA [Suspect]
     Indication: BACK PAIN
     Dosage: ORAL
     Route: 048
     Dates: end: 20110324

REACTIONS (4)
  - HEADACHE [None]
  - ABDOMINAL DISCOMFORT [None]
  - DRUG INTERACTION [None]
  - RASH [None]
